FAERS Safety Report 5068475-5 (Version None)
Quarter: 2006Q3

REPORT INFORMATION
  Report Type: 
  Country: None (occurrence: None)
  Receive Date: 20060802
  Receipt Date: 20051014
  Transmission Date: 20061208
  Serious: Yes (Hospitalization)
  Sender: FDA-Public Use
  Company Number: US-BRISTOL-MYERS SQUIBB COMPANY-13145966

PATIENT
  Age: 44 Year
  Sex: Male
  Weight: 113 kg

DRUGS (5)
  1. COUMADIN [Suspect]
     Indication: TRANSIENT ISCHAEMIC ATTACK
     Dosage: INTERRUPTED 02-OCT-2005 AND RESTARTED 12-OCT-2005 DUE TO CORTISONE INJECTIONS
     Dates: start: 20050101
  2. RISPERDAL [Concomitant]
  3. LAMICTAL [Concomitant]
  4. VITAMIN SUPPLEMENT [Concomitant]
  5. PROTONIX [Concomitant]

REACTIONS (5)
  - BURNING SENSATION [None]
  - HYPOAESTHESIA [None]
  - NAIL GROWTH ABNORMAL [None]
  - PAIN IN EXTREMITY [None]
  - TRANSIENT ISCHAEMIC ATTACK [None]
